FAERS Safety Report 8320403-2 (Version None)
Quarter: 2012Q2

REPORT INFORMATION
  Report Type: 
  Country: None (occurrence: None)
  Receive Date: 20120426
  Receipt Date: 20120426
  Transmission Date: 20120825
  Serious: No
  Sender: FDA-Public Use
  Company Number: None

PATIENT
  Age: 89 Year
  Sex: Female
  Weight: 52.6173 kg

DRUGS (1)
  1. MIRTAZAPINE [Suspect]
     Indication: ANTIDEPRESSANT THERAPY
     Dosage: ONE PER DAY (15 MG) ONE DAILY MOUTH
     Route: 048
     Dates: start: 20100101, end: 20120322

REACTIONS (6)
  - CONFUSIONAL STATE [None]
  - CONSTIPATION [None]
  - PRURITUS [None]
  - INSOMNIA [None]
  - NO THERAPEUTIC RESPONSE [None]
  - DRY MOUTH [None]
